FAERS Safety Report 12226066 (Version 2)
Quarter: 2016Q2

REPORT INFORMATION
  Report Type: Spontaneous
  Country: PK (occurrence: PK)
  Receive Date: 20160331
  Receipt Date: 20160518
  Transmission Date: 20160815
  Serious: Yes (Death, Hospitalization)
  Sender: FDA-Public Use
  Company Number: PK-VIFOR (INTERNATIONAL) INC.-VIT-2016-01416

PATIENT
  Age: 60 Year
  Sex: Female

DRUGS (2)
  1. INSULIN [Concomitant]
     Active Substance: INSULIN NOS
     Indication: DIABETES MELLITUS
     Route: 058
     Dates: start: 2006
  2. MIRCERA [Suspect]
     Active Substance: METHOXY POLYETHYLENE GLYCOL-EPOETIN BETA
     Indication: NEPHROGENIC ANAEMIA
     Route: 042
     Dates: start: 201510, end: 201602

REACTIONS (4)
  - Cardiopulmonary failure [Fatal]
  - Pleural effusion [Unknown]
  - Cardio-respiratory arrest [Fatal]
  - Condition aggravated [Unknown]

NARRATIVE: CASE EVENT DATE: 201603
